FAERS Safety Report 14152913 (Version 1)
Quarter: 2017Q4

REPORT INFORMATION
  Report Type: Spontaneous
  Country: ZA (occurrence: ZA)
  Receive Date: 20171102
  Receipt Date: 20171102
  Transmission Date: 20180321
  Serious: Yes (Other)
  Sender: FDA-Public Use
  Company Number: ZA-PFIZER INC-2017467944

PATIENT
  Age: 21 Year
  Sex: Male
  Weight: 94 kg

DRUGS (4)
  1. METHOTREXATE SODIUM. [Suspect]
     Active Substance: METHOTREXATE SODIUM
     Dosage: 30 UG, WEEKLY
     Route: 058
     Dates: start: 201106, end: 201406
  2. ARAVA [Suspect]
     Active Substance: LEFLUNOMIDE
     Dosage: 20 UG, DAILY
     Dates: start: 201405, end: 201407
  3. SALAZOPYRIN [Suspect]
     Active Substance: SULFASALAZINE
     Dosage: 1 G, 2X/DAY
     Dates: start: 201305
  4. PLASMAQUINE [Suspect]
     Active Substance: CHLOROQUINE SULFATE
     Dosage: 200 UG, DAILY
     Dates: start: 201106

REACTIONS (4)
  - Cachexia [Unknown]
  - Drug ineffective [Unknown]
  - Hypersensitivity [Unknown]
  - Gastrooesophageal reflux disease [Unknown]

NARRATIVE: CASE EVENT DATE: 2013
